FAERS Safety Report 15362315 (Version 2)
Quarter: 2020Q1

REPORT INFORMATION
  Report Type: Report from Study
  Country: MX (occurrence: MX)
  Receive Date: 20180907
  Receipt Date: 20200312
  Transmission Date: 20200409
  Serious: Yes (Other)
  Sender: FDA-Public Use
  Company Number: MX-BRISTOL-MYERS SQUIBB COMPANY-BMS-2018-080807

PATIENT
  Age: 44 Year
  Sex: Female
  Weight: 41.5 kg

DRUGS (8)
  1. TRAMADOL. [Concomitant]
     Active Substance: TRAMADOL
     Indication: PRODUCT USED FOR UNKNOWN INDICATION
     Dosage: 50 MG, UNK
     Route: 065
     Dates: start: 20180328
  2. OXALIPLATIN. [Suspect]
     Active Substance: OXALIPLATIN
     Indication: GASTROOESOPHAGEAL CANCER
     Dosage: 179 MG, UNK
     Route: 065
     Dates: start: 20180525, end: 20180615
  3. BEDOYECTA TRI [HYDROXOCOBALAMIN;PYRIDOXINE HYDROCHLORIDE;THIAMINE HYDR [Concomitant]
     Indication: PRODUCT USED FOR UNKNOWN INDICATION
     Dosage: 10000 ?G, UNK
     Route: 065
     Dates: start: 20180817
  4. CAPECITABINE. [Suspect]
     Active Substance: CAPECITABINE
     Indication: GASTROOESOPHAGEAL CANCER
     Dosage: 1300 MG, UNK
     Route: 065
     Dates: start: 20180525, end: 20180615
  5. KETOROLAK [Concomitant]
     Indication: PRODUCT USED FOR UNKNOWN INDICATION
     Dosage: 20 MG, UNK
     Route: 065
     Dates: start: 20180328
  6. PREDNISONE. [Concomitant]
     Active Substance: PREDNISONE
     Indication: PRODUCT USED FOR UNKNOWN INDICATION
     Dosage: 50 MG, UNK
     Route: 065
     Dates: start: 20180827
  7. NIVOLUMAB [Suspect]
     Active Substance: NIVOLUMAB
     Indication: GASTROOESOPHAGEAL CANCER
     Dosage: 360 MG, UNK
     Route: 042
     Dates: start: 20180525, end: 20180615
  8. FILGRASTIM [Concomitant]
     Active Substance: FILGRASTIM
     Indication: PRODUCT USED FOR UNKNOWN INDICATION
     Dosage: 300 ?G, UNK
     Route: 065
     Dates: start: 20180727

REACTIONS (1)
  - Myelodysplastic syndrome [Recovered/Resolved]

NARRATIVE: CASE EVENT DATE: 20180712
